FAERS Safety Report 7367560-2 (Version None)
Quarter: 2011Q1

REPORT INFORMATION
  Report Type: 
  Country: None (occurrence: None)
  Receive Date: 20110314
  Receipt Date: 20110307
  Transmission Date: 20110831
  Serious: Yes (Death)
  Sender: FDA-Public Use
  Company Number: 2011SP010733

PATIENT
  Age: 49 Year
  Sex: Male
  Weight: 72 kg

DRUGS (18)
  1. KYTRIL [Concomitant]
  2. BAKTAR [Concomitant]
  3. GLUCOBAY [Concomitant]
  4. TEMODAL [Suspect]
     Indication: NEOPLASM RECURRENCE
     Dosage: SEE IMAGE
     Route: 048
     Dates: start: 20061127, end: 20061201
  5. TEMODAL [Suspect]
     Indication: ANAPLASTIC ASTROCYTOMA
     Dosage: SEE IMAGE
     Route: 048
     Dates: start: 20061127, end: 20061201
  6. TEMODAL [Suspect]
     Indication: NEOPLASM RECURRENCE
     Dosage: SEE IMAGE
     Route: 048
     Dates: start: 20070122, end: 20070126
  7. TEMODAL [Suspect]
     Indication: ANAPLASTIC ASTROCYTOMA
     Dosage: SEE IMAGE
     Route: 048
     Dates: start: 20070122, end: 20070126
  8. TEMODAL [Suspect]
     Indication: NEOPLASM RECURRENCE
     Dosage: SEE IMAGE
     Route: 048
     Dates: start: 20070409, end: 20070413
  9. TEMODAL [Suspect]
     Indication: ANAPLASTIC ASTROCYTOMA
     Dosage: SEE IMAGE
     Route: 048
     Dates: start: 20070409, end: 20070413
  10. TEMODAL [Suspect]
     Indication: NEOPLASM RECURRENCE
     Dosage: SEE IMAGE
     Route: 048
     Dates: start: 20061030, end: 20061103
  11. TEMODAL [Suspect]
     Indication: ANAPLASTIC ASTROCYTOMA
     Dosage: SEE IMAGE
     Route: 048
     Dates: start: 20061030, end: 20061103
  12. TEMODAL [Suspect]
     Indication: NEOPLASM RECURRENCE
     Dosage: SEE IMAGE
     Route: 048
     Dates: start: 20070226, end: 20070302
  13. TEMODAL [Suspect]
     Indication: ANAPLASTIC ASTROCYTOMA
     Dosage: SEE IMAGE
     Route: 048
     Dates: start: 20070226, end: 20070302
  14. TEMODAL [Suspect]
     Indication: NEOPLASM RECURRENCE
     Dosage: SEE IMAGE
     Route: 048
     Dates: start: 20061225, end: 20061229
  15. TEMODAL [Suspect]
     Indication: ANAPLASTIC ASTROCYTOMA
     Dosage: SEE IMAGE
     Route: 048
     Dates: start: 20061225, end: 20061229
  16. MYSTIN [Concomitant]
  17. NOVORAPID [Concomitant]
  18. DEPAKENE [Concomitant]

REACTIONS (1)
  - DEATH [None]
